FAERS Safety Report 16426542 (Version 1)
Quarter: 2019Q2

REPORT INFORMATION
  Report Type: Spontaneous
  Country: US (occurrence: US)
  Receive Date: 20190613
  Receipt Date: 20190613
  Transmission Date: 20190711
  Serious: Yes (Other)
  Sender: FDA-Public Use
  Company Number: US-AKORN PHARMACEUTICALS-2019AKN01242

PATIENT
  Age: 31 Year
  Sex: Female

DRUGS (1)
  1. MYORISAN [Suspect]
     Active Substance: ISOTRETINOIN
     Dosage: UNK
     Dates: start: 20190501

REACTIONS (3)
  - Intentional product misuse [Unknown]
  - Suicidal ideation [Unknown]
  - Skin disorder [Unknown]

NARRATIVE: CASE EVENT DATE: 201905
